FAERS Safety Report 7014540-2 (Version None)
Quarter: 2010Q3

REPORT INFORMATION
  Report Type: 
  Country: None (occurrence: None)
  Receive Date: 20100927
  Receipt Date: 20100914
  Transmission Date: 20110219
  Serious: Yes (Other)
  Sender: FDA-Public Use
  Company Number: US-ELI_LILLY_AND_COMPANY-US201009004194

PATIENT
  Sex: Female

DRUGS (1)
  1. FORTEO [Suspect]
     Indication: OSTEOPOROSIS
     Dosage: 20 UG, DAILY (1/D)
     Dates: start: 20100528, end: 20100721

REACTIONS (10)
  - CONVULSION [None]
  - DIZZINESS [None]
  - FEELING ABNORMAL [None]
  - INJECTION SITE HAEMATOMA [None]
  - MALAISE [None]
  - NAUSEA [None]
  - NERVOUSNESS [None]
  - SPEECH DISORDER [None]
  - TREMOR [None]
  - VERTIGO [None]
